FAERS Safety Report 13925404 (Version 4)
Quarter: 2018Q1

REPORT INFORMATION
  Report Type: Report from Study
  Country: US (occurrence: US)
  Receive Date: 20170831
  Receipt Date: 20180115
  Transmission Date: 20180508
  Serious: Yes (Hospitalization, Other)
  Sender: FDA-Public Use
  Company Number: US-JNJFOC-20170828249

PATIENT
  Sex: Female

DRUGS (2)
  1. ENTOCORT [Suspect]
     Active Substance: BUDESONIDE
     Indication: PRODUCT USED FOR UNKNOWN INDICATION
     Route: 065
  2. STELARA [Suspect]
     Active Substance: USTEKINUMAB
     Indication: CROHN^S DISEASE
     Route: 042
     Dates: start: 20170607

REACTIONS (10)
  - Peripheral swelling [Unknown]
  - Fatigue [Unknown]
  - Drug dose omission [Unknown]
  - Dental caries [Not Recovered/Not Resolved]
  - Knee operation [Unknown]
  - Weight decreased [Unknown]
  - Haemoglobin decreased [Unknown]
  - Knee arthroplasty [Unknown]
  - Infection [Unknown]
  - Oral pain [Unknown]

NARRATIVE: CASE EVENT DATE: 2017
